FAERS Safety Report 9736053 (Version 2)
Quarter: 2014Q1

REPORT INFORMATION
  Report Type: Spontaneous
  Country: US (occurrence: US)
  Receive Date: 20131206
  Receipt Date: 20140313
  Transmission Date: 20141002
  Serious: Yes (Death, Other)
  Sender: FDA-Public Use
  Company Number: US-PFIZER INC-2013344887

PATIENT
  Age: 66 Year
  Sex: Male

DRUGS (58)
  1. INLYTA [Suspect]
     Indication: RENAL CELL CARCINOMA
     Dosage: 5 MG, 2X/DAY (1 EVERY 12 HOURS)
     Route: 048
     Dates: start: 20131031
  2. INLYTA [Suspect]
     Dosage: UNK
     Route: 048
     Dates: start: 20131116
  3. AMBIEN [Concomitant]
     Dosage: UNK
     Dates: start: 20121116
  4. AMOXICLLIN-POT CLAVULANATE [Concomitant]
     Dosage: UNK
     Dates: start: 20130121
  5. AMOXICLLIN-POT CLAVULANATE [Concomitant]
     Dosage: 1 DF, 2X/DAY
     Route: 048
  6. AZOR [Concomitant]
     Indication: RENAL CELL CARCINOMA
     Dosage: UNK
     Route: 048
     Dates: start: 20121121
  7. AZOR [Concomitant]
     Dosage: DAILY
     Route: 048
     Dates: start: 20130812
  8. AZOR [Concomitant]
     Dosage: UNK (10-40 MG - TAKE 1 TABLET ORAL DAILY)
     Route: 048
     Dates: start: 201207, end: 20130325
  9. AZOR [Concomitant]
     Dosage: UNK (5-20 MG - TAKE 1 TABLET ORAL DAILY)
     Route: 048
     Dates: start: 20130402, end: 20130404
  10. AZOR [Concomitant]
     Dosage: UNK (10-40 MG - TAKE 1 TABLET ORAL DAILY)
     Route: 048
     Dates: start: 20130404, end: 20130711
  11. AZOR [Concomitant]
     Dosage: UNK (5-20 MG - TAKE 1 TABLET ORAL DAILY)
     Route: 048
     Dates: start: 20130805, end: 20130807
  12. AZOR [Concomitant]
     Dosage: 5 MG, 2X/DAY (5MG TAKE 1 TABLET ORAL EVERY 12 HOUR FOR 30 DAYS)
     Route: 048
     Dates: start: 20131031
  13. BUMEX [Concomitant]
     Dosage: UNK
     Route: 048
     Dates: start: 20130116
  14. BUMEX [Concomitant]
     Dosage: 2 MG, 1X/DAY (TAKE 1 TABLET ORAL DAILY)
     Route: 048
     Dates: start: 20130515, end: 20130529
  15. MAGIC MOUTHWASH [Concomitant]
     Dosage: UNK
     Dates: start: 20121106
  16. DIGOXIN [Concomitant]
     Dosage: UNK
     Dates: start: 20131104
  17. DIGOXIN [Concomitant]
     Dosage: 0.125 MG, 1X/DAY (TAKE 1 TABLET ORAL DAILY)
     Route: 048
     Dates: start: 2008
  18. DRONABINOL [Concomitant]
     Dosage: UNK
     Dates: start: 20130916
  19. ENOXAPARIN SODIUM [Concomitant]
     Dosage: UNK
     Dates: start: 20131009
  20. K-LYTE [Concomitant]
     Dosage: UNK
     Dates: start: 20131104
  21. LYRICA [Concomitant]
     Dosage: UNK
     Dates: start: 20130923
  22. LYRICA [Concomitant]
     Dosage: 50 MG, 3X/DAY (TAKE 1 TABLET CAPSULE ORAL T.I.D)
     Route: 048
     Dates: start: 20130923, end: 20130923
  23. PREDNISONE [Concomitant]
     Dosage: UNK (TABLET ORAL TAKE AS DIRECTED)
     Route: 048
     Dates: start: 20130506, end: 20130511
  24. PREDNISONE [Concomitant]
     Dosage: UNK (TABLET ORAL TAKE AS DIRECTED)
     Route: 048
     Dates: start: 20130513, end: 20130519
  25. PROCHLORPERAZINE MALEATE [Concomitant]
     Dosage: UNK
     Dates: start: 20121106
  26. ROSUVASTATIN CALCIUM [Concomitant]
     Dosage: UNK
     Route: 048
     Dates: start: 20130402, end: 20130416
  27. TRIAMCINOLONE ACETONIDE [Concomitant]
     Dosage: UNK
     Dates: start: 20130923
  28. TRIAMCINOLONE ACETONIDE [Concomitant]
     Dosage: UNK
     Route: 061
     Dates: start: 201205
  29. TRIAMCINOLONE ACETONIDE [Concomitant]
     Dosage: UNK
     Dates: start: 20130816
  30. TRIAMCINOLONE ACETONIDE [Concomitant]
     Dosage: UNK (CREAM - APPLY TOPICAL B.I.D)
     Route: 061
     Dates: end: 20121106
  31. TRIAMCINOLONE ACETONIDE [Concomitant]
     Dosage: UNK (CREAM - APPLY TOPICAL DAILY PRN)
     Route: 061
     Dates: start: 201205, end: 20130826
  32. ACETAMINOPHEN [Concomitant]
     Dosage: 325 MG, AS NEEDED (TAKE 2 TABLET ORAL PRN)
     Route: 048
     Dates: start: 2000
  33. ACETAMINOPHEN [Concomitant]
     Dosage: 325 MG, (TAKE 650 MG TABLET ORAL ONCE)
     Route: 048
     Dates: start: 20121126, end: 20130926
  34. ALKA-SELTZER [Concomitant]
     Dosage: UNK (TAKE 2 TABLET ORAL PRN)
     Route: 048
     Dates: start: 2006
  35. COREG [Concomitant]
     Dosage: 25 MG, 2X/DAY (TAKE 1 TABLET ORAL B.I.D)
     Route: 048
     Dates: start: 2010
  36. DILAUDID [Concomitant]
     Dosage: 2 MG, AS NEEDED (2 MG A TAKE 1 TABLET ORAL PRN)
     Route: 048
     Dates: start: 201309
  37. FENTANYL [Concomitant]
     Dosage: UNK (PATCH 72 HR 50 MCG/HR - APPLY 1 TRANSDERMAL)
     Route: 062
     Dates: start: 20130927
  38. FERROUS SULFATE [Concomitant]
     Dosage: 325 MG, 2X/DAY (325 (65 FE) MG - TAKE 1 TABLET, ENTERIC COATED ORAL B.I.D)
     Route: 048
     Dates: start: 20130812
  39. FISH OIL [Concomitant]
     Dosage: 1200 MG, 4X/DAY (TAKE 4 CAPSULE ORAL DAILY)
     Route: 048
     Dates: start: 20130429
  40. FISH OIL [Concomitant]
     Dosage: 1200 MG, 2X/DAY (TAKE 1 CAPSULE ORAL B.I.D)
     Route: 048
     Dates: start: 20130416, end: 20130429
  41. HUMALOG [Concomitant]
     Dosage: UNK (SUBCUTANEOUS TAKE AS DIRECTED)
     Route: 058
     Dates: start: 1998
  42. HYDRALAZINE HCL [Concomitant]
     Dosage: 25 MG, 3X/DAY (TAKE 1 TABLET ORAL T.I.D)
     Route: 048
  43. HYDRALAZINE HCL [Concomitant]
     Dosage: 50 MG, UNK (TAKE 1 TABLET ORAL T.I.D. FOR 30 DAYS)
     Route: 048
     Dates: start: 20121126, end: 20131122
  44. HYDROMORPHONE HYDROCHLORIDE [Concomitant]
     Dosage: 2 MG, EVERY 4 HRS (TAKE 1 ORAL Q 4 HOURS PRN)
     Route: 048
  45. HYDROMORPHONE HYDROCHLORIDE [Concomitant]
     Dosage: 2 MG, EVERY 4 HRS (TAKE 1 TABLET ORAL Q 4 HOURS FOR 30 DAYS PRN)
     Route: 048
     Dates: start: 20131024, end: 20131123
  46. KLOR CON M20 [Concomitant]
     Dosage: 20 MG, 2X/DAY (TAKE 1 TABLET, CONTROLLED RELEASE ORAL B.I.D)
     Route: 048
     Dates: start: 2003
  47. LANTUS [Concomitant]
     Dosage: UNK
     Route: 058
     Dates: start: 1998, end: 20130731
  48. LANTUS [Concomitant]
     Dosage: 100 UNK, UNK (100 UNITS/ML - 45 UNITS - MG/ML SUBCUTANEOUS DAILY)
     Route: 058
     Dates: start: 20130731
  49. MIRALAX [Concomitant]
     Dosage: UNK (TAKE ORAL DAILY)
     Route: 048
     Dates: start: 20130812
  50. MIRALAX [Concomitant]
     Dosage: 17 G, DAILY (TAKE 17 G ORAL DAILY)
     Route: 048
     Dates: start: 20130708, end: 20130708
  51. OMEPRAZOLE [Concomitant]
     Dosage: 20 MG, 2X/DAY (TAKE 2 TABLET, ENTERIC COATED ORAL DAILY)
     Route: 048
     Dates: start: 20130830
  52. OMEPRAZOLE [Concomitant]
     Dosage: 20 MG, 2X/DAY (TAKE 2 CAPSULE CAPSULE DELAYED RELEASE ORAL DAILY)
     Route: 048
     Dates: start: 20130708, end: 20130708
  53. ZOLPIDEM TARTRATE [Concomitant]
     Dosage: 10 MG, AS NEEDED (10 MG - TAKE 1 TABLET TABLET ORAL AT BEDTIME PRN)
     Route: 048
     Dates: start: 201207
  54. BUMETANIDE [Concomitant]
     Dosage: 1 MG, 2X/DAY (TAKE 2 TABLET ORAL BID. FOR 30 DAYS)
     Route: 048
     Dates: start: 20121116, end: 20131212
  55. BUMETANIDE [Concomitant]
     Dosage: 2 MG, 3X/DAY (2 MG - TAKE 1 TABLET ORAL T.I.D)
     Route: 048
     Dates: end: 20130325
  56. DURAGESIC-50 [Concomitant]
     Dosage: UNK (PATCH 72 HR 50 MCG/HR - APPLY 1 TRANSDERMAL Q 72 HOURS FOR 30 DAYS)
     Route: 062
     Dates: start: 20131024, end: 20131123
  57. LORAZEPAM [Concomitant]
     Dosage: 0.5 MG, SINGLE
     Route: 048
     Dates: start: 20130812, end: 20130812
  58. AUGMENTIN [Concomitant]
     Dosage: UNK (875-125 MG - TAKE 1 TABLET ORAL Q 12 HOURS)
     Route: 048
     Dates: end: 20131025

REACTIONS (3)
  - Death [Fatal]
  - Second primary malignancy [Unknown]
  - Brain neoplasm [Unknown]
